FAERS Safety Report 16873998 (Version 1)
Quarter: 2019Q4

REPORT INFORMATION
  Report Type: Spontaneous
  Country: ZA (occurrence: ZA)
  Receive Date: 20191001
  Receipt Date: 20191001
  Transmission Date: 20200122
  Serious: Yes (Hospitalization, Other)
  Sender: FDA-Public Use
  Company Number: ZA-ABBVIE-19K-143-2943952-00

PATIENT
  Sex: Male
  Weight: 62 kg

DRUGS (25)
  1. NEVIRAPINE. [Suspect]
     Active Substance: NEVIRAPINE
     Indication: ANTIRETROVIRAL THERAPY
     Route: 065
  2. TERIZIDONE [Concomitant]
     Active Substance: TERIZIDONE
     Indication: PRODUCT USED FOR UNKNOWN INDICATION
     Dates: start: 20190311, end: 2019
  3. CLOFAZIMINE [Concomitant]
     Active Substance: CLOFAZIMINE
     Dates: start: 20190612, end: 20190712
  4. LINEZOLID. [Concomitant]
     Active Substance: LINEZOLID
     Indication: PRODUCT USED FOR UNKNOWN INDICATION
     Dates: start: 20190311, end: 2019
  5. DELAMANID [Suspect]
     Active Substance: DELAMANID
     Indication: TUBERCULOSIS
     Route: 065
     Dates: start: 20190514, end: 20190528
  6. CLOFAZIMINE [Concomitant]
     Active Substance: CLOFAZIMINE
     Indication: PRODUCT USED FOR UNKNOWN INDICATION
     Dates: start: 20190311, end: 20190528
  7. CLOFAZIMINE [Concomitant]
     Active Substance: CLOFAZIMINE
     Dates: start: 20190719, end: 2019
  8. TERIZIDONE [Concomitant]
     Active Substance: TERIZIDONE
     Dates: start: 20190606, end: 20190712
  9. ALUVIA [Suspect]
     Active Substance: LOPINAVIR\RITONAVIR
     Indication: PRODUCT USED FOR UNKNOWN INDICATION
     Route: 065
     Dates: start: 20190531, end: 2019
  10. BEDAQUILINE [Suspect]
     Active Substance: BEDAQUILINE
     Route: 065
     Dates: start: 20190530, end: 20190606
  11. PREGABALIN. [Suspect]
     Active Substance: PREGABALIN
     Indication: TUBERCULOSIS
     Route: 065
     Dates: start: 20190414, end: 20190528
  12. EMTRICITABINE W/TENOFOVIR [Concomitant]
     Active Substance: EMTRICITABINE\TENOFOVIR DISOPROXIL
     Indication: PRODUCT USED FOR UNKNOWN INDICATION
     Dates: start: 20190311, end: 20190528
  13. EMTRICITABINE W/TENOFOVIR [Concomitant]
     Active Substance: EMTRICITABINE\TENOFOVIR DISOPROXIL
     Dates: start: 20190531, end: 20190712
  14. LEVOFLOXACIN. [Concomitant]
     Active Substance: LEVOFLOXACIN
     Indication: PRODUCT USED FOR UNKNOWN INDICATION
     Dates: start: 20190311, end: 20190528
  15. BEDAQUILINE [Suspect]
     Active Substance: BEDAQUILINE
     Route: 065
     Dates: start: 20190611, end: 20190712
  16. LAMIVUDINE. [Concomitant]
     Active Substance: LAMIVUDINE
     Indication: PRODUCT USED FOR UNKNOWN INDICATION
     Dates: start: 201903, end: 20190529
  17. BEDAQUILINE [Suspect]
     Active Substance: BEDAQUILINE
     Indication: MULTIPLE-DRUG RESISTANCE
     Route: 065
     Dates: start: 20190311, end: 20190528
  18. DELAMANID [Suspect]
     Active Substance: DELAMANID
     Route: 065
     Dates: start: 20190619, end: 20190712
  19. CLOFAZIMINE [Concomitant]
     Active Substance: CLOFAZIMINE
     Dates: start: 20190530, end: 2019
  20. ALUVIA [Suspect]
     Active Substance: LOPINAVIR\RITONAVIR
     Route: 065
     Dates: start: 201906, end: 20190712
  21. PYRAZINAMIDE. [Suspect]
     Active Substance: PYRAZINAMIDE
     Indication: TUBERCULOSIS
     Route: 065
     Dates: start: 20190311, end: 20190414
  22. DELAMANID [Suspect]
     Active Substance: DELAMANID
     Route: 065
     Dates: start: 20190530, end: 20190606
  23. PYRIDOXINE [Concomitant]
     Active Substance: PYRIDOXINE
     Indication: PRODUCT USED FOR UNKNOWN INDICATION
     Dates: start: 20190311, end: 20190528
  24. LAMIVUDINE. [Concomitant]
     Active Substance: LAMIVUDINE
     Dates: start: 20190531, end: 20190712
  25. LINEZOLID. [Concomitant]
     Active Substance: LINEZOLID
     Dates: start: 20190606, end: 20190612

REACTIONS (21)
  - Blood calcium decreased [Unknown]
  - Candida infection [Unknown]
  - Neuropathy peripheral [Unknown]
  - Sepsis [Unknown]
  - Pneumonia [Unknown]
  - Cough [Unknown]
  - Pneumothorax [Unknown]
  - Klebsiella infection [Unknown]
  - Blood sodium decreased [Unknown]
  - Ascites [Unknown]
  - Arthralgia [Unknown]
  - Tremor [Unknown]
  - Blood albumin decreased [Unknown]
  - Lethargy [Unknown]
  - Respiratory failure [Unknown]
  - Hepatic failure [Unknown]
  - Respiratory distress [Unknown]
  - Drug-induced liver injury [Recovering/Resolving]
  - Dyspnoea [Unknown]
  - Hypoglycaemia [Unknown]
  - Oedema [Unknown]

NARRATIVE: CASE EVENT DATE: 2019
